FAERS Safety Report 7341534-X (Version None)
Quarter: 2011Q1

REPORT INFORMATION
  Report Type: 
  Country: None (occurrence: None)
  Receive Date: 20110309
  Receipt Date: 20110304
  Transmission Date: 20110831
  Serious: Yes (Other)
  Sender: FDA-Public Use
  Company Number: CA-PFIZER INC-2011049326

PATIENT
  Age: 52 Year
  Sex: Male

DRUGS (3)
  1. CRESTOR [Concomitant]
     Indication: HYPERCHOLESTEROLAEMIA
     Dosage: UNK
     Route: 048
     Dates: start: 20050101
  2. ADVIL PM [Suspect]
     Indication: SLEEP DISORDER
     Dosage: TOOK 1 OR 2 CAPSULES
     Route: 048
     Dates: start: 20110225, end: 20110225
  3. ADVIL PM [Suspect]
     Indication: PAIN IN EXTREMITY

REACTIONS (2)
  - HAEMATOCHEZIA [None]
  - ABDOMINAL PAIN [None]
